FAERS Safety Report 18445009 (Version 1)
Quarter: 2020Q4

REPORT INFORMATION
  Report Type: Spontaneous
  Country: HU (occurrence: HU)
  Receive Date: 20201030
  Receipt Date: 20201030
  Transmission Date: 20210114
  Serious: Yes (Other)
  Sender: FDA-Public Use
  Company Number: HU-ABBVIE-20K-076-3627471-00

PATIENT
  Sex: Female

DRUGS (6)
  1. VENCLYXTO [Suspect]
     Active Substance: VENETOCLAX
     Indication: ACUTE MYELOID LEUKAEMIA
     Dosage: 100, 200, 300 MG DAY 1 TO 3
     Route: 048
  2. VENCLYXTO [Suspect]
     Active Substance: VENETOCLAX
     Dosage: 100, 200, 300 MG DAY 1 TO 3
     Route: 048
  3. AZACITIDINE. [Concomitant]
     Active Substance: AZACITIDINE
     Indication: ACUTE MYELOID LEUKAEMIA
     Dosage: 50 MG/M2 FOR 7 DAYS CYCLE
     Dates: start: 201904
  4. VENCLYXTO [Suspect]
     Active Substance: VENETOCLAX
     Dosage: 100, 200, 300 MG DAY 1 TO 3
     Route: 048
  5. AZACITIDINE. [Concomitant]
     Active Substance: AZACITIDINE
     Dosage: 75 MG/M2 DAY 1-7 Q4 WEEKS.
  6. VENCLYXTO [Suspect]
     Active Substance: VENETOCLAX
     Dosage: 400 MG ONCE DAILY 21 DAYS CYCLE
     Route: 048
     Dates: start: 201904

REACTIONS (3)
  - Packed red blood cell transfusion [Unknown]
  - Neutropenia [Recovered/Resolved]
  - Febrile neutropenia [Recovered/Resolved]
